FAERS Safety Report 21896249 (Version 1)
Quarter: 2023Q1

REPORT INFORMATION
  Report Type: Spontaneous
  Country: DE (occurrence: DE)
  Receive Date: 20230123
  Receipt Date: 20230123
  Transmission Date: 20230417
  Serious: No
  Sender: FDA-Public Use
  Company Number: DE-ALKEM LABORATORIES LIMITED-DE-ALKEM-2022-11200

PATIENT
  Sex: Female

DRUGS (2)
  1. FINGOLIMOD [Suspect]
     Active Substance: FINGOLIMOD
     Indication: Multiple sclerosis
     Dosage: 0.5 MILLIGRAM
     Route: 065
     Dates: start: 2022
  2. FINGOLIMOD [Suspect]
     Active Substance: FINGOLIMOD
     Dosage: UNK
     Route: 065
     Dates: start: 2010, end: 2022

REACTIONS (3)
  - Hepatic enzyme abnormal [Unknown]
  - Liver function test abnormal [Unknown]
  - Inappropriate schedule of product administration [Unknown]

NARRATIVE: CASE EVENT DATE: 20220101
